FAERS Safety Report 13710683 (Version 1)
Quarter: 2017Q3

REPORT INFORMATION
  Report Type: Spontaneous
  Country: US (occurrence: US)
  Receive Date: 20170702
  Receipt Date: 20170702
  Transmission Date: 20171127
  Serious: No
  Sender: FDA-Public Use
  Company Number: None

PATIENT
  Age: 49 Year
  Sex: Female
  Weight: 65.25 kg

DRUGS (9)
  1. FISH OIL [Concomitant]
     Active Substance: FISH OIL
  2. ARNUITY ELLIPTA [Concomitant]
     Active Substance: FLUTICASONE FUROATE
  3. COMBIVIR [Concomitant]
     Active Substance: LAMIVUDINE\ZIDOVUDINE
  4. GENERIC CRESTOR [Concomitant]
     Active Substance: ROSUVASTATIN CALCIUM
  5. MSM [Concomitant]
     Active Substance: DIMETHYL SULFONE
  6. FLAXSEED [Concomitant]
     Active Substance: FLAX SEED
  7. VIRACEPT [Concomitant]
     Active Substance: NELFINAVIR MESYLATE
  8. GENVOYA [Suspect]
     Active Substance: COBICISTAT\ELVITEGRAVIR\EMTRICITABINE\TENOFOVIR ALAFENAMIDE FUMARATE
     Indication: HIV INFECTION
     Dosage: ?          QUANTITY:1 TABLET(S);?
     Route: 048
     Dates: start: 20170401, end: 20170622
  9. ONE-A-DAY [Concomitant]

REACTIONS (7)
  - Dyspnoea [None]
  - Panic attack [None]
  - Heart rate increased [None]
  - Palpitations [None]
  - Dizziness [None]
  - Asthenia [None]
  - Fatigue [None]

NARRATIVE: CASE EVENT DATE: 20170616
